FAERS Safety Report 7112579-X (Version None)
Quarter: 2010Q4

REPORT INFORMATION
  Report Type: 
  Country: None (occurrence: None)
  Receive Date: 20101119
  Receipt Date: 20100427
  Transmission Date: 20110411
  Serious: No
  Sender: FDA-Public Use
  Company Number: US-TEVA-233251USA

PATIENT
  Sex: Female
  Weight: 57.204 kg

DRUGS (2)
  1. ALBUTEROL SULFATE AUTOHALER [Suspect]
     Route: 055
     Dates: start: 20100301
  2. LORATADINE [Concomitant]
     Route: 048
     Dates: start: 20100301

REACTIONS (4)
  - DIZZINESS [None]
  - HEADACHE [None]
  - PAIN IN EXTREMITY [None]
  - RHINORRHOEA [None]
